FAERS Safety Report 24100738 (Version 3)
Quarter: 2024Q3

REPORT INFORMATION
  Report Type: Report from Study
  Country: US (occurrence: US)
  Receive Date: 20240717
  Receipt Date: 20240917
  Transmission Date: 20241017
  Serious: Yes (Other)
  Sender: ABBVIE
  Company Number: US-ABBVIE-5840486

PATIENT
  Sex: Male

DRUGS (2)
  1. SKYRIZI [Suspect]
     Active Substance: RISANKIZUMAB-RZAA
     Indication: Psoriasis
     Dosage: WEEK 0?FORM STRENGTH 150 MILLIGRAM
     Route: 058
     Dates: start: 20240614, end: 20240614
  2. SKYRIZI [Suspect]
     Active Substance: RISANKIZUMAB-RZAA
     Dosage: WEEK 4 THEN EVERY 12 WEEKS THEREAFTER?FORM STRENGTH 150 MILLIGRAM
     Route: 058
     Dates: start: 20240816

REACTIONS (2)
  - Anal abscess [Recovered/Resolved]
  - Infected cyst [Recovered/Resolved]

NARRATIVE: CASE EVENT DATE: 20240101
